FAERS Safety Report 7058913-0 (Version None)
Quarter: 2010Q4

REPORT INFORMATION
  Report Type: 
  Country: None (occurrence: None)
  Receive Date: 20101023
  Receipt Date: 20101021
  Transmission Date: 20110411
  Serious: Yes (Other)
  Sender: FDA-Public Use
  Company Number: US-WYE-H15467910

PATIENT
  Sex: Female
  Weight: 54.48 kg

DRUGS (7)
  1. PRISTIQ [Suspect]
     Indication: DEPRESSION
     Route: 048
     Dates: start: 20100101
  2. PRISTIQ [Suspect]
     Route: 048
     Dates: start: 20100101, end: 20100826
  3. CIMICIFUGA [Concomitant]
     Dosage: UNKNOWN
  4. ACICLOVIR [Concomitant]
  5. VITAMINS [Concomitant]
     Dosage: UNKNOWN
  6. LAMICTAL [Suspect]
     Dosage: UNKNOWN
  7. ARMOUR THYROID [Concomitant]
     Dosage: 30 MG, UNSPECIFIED FREQUENCY

REACTIONS (17)
  - ABNORMAL BEHAVIOUR [None]
  - ACTIVITIES OF DAILY LIVING IMPAIRED [None]
  - ANORGASMIA [None]
  - BRADYPHRENIA [None]
  - CLUMSINESS [None]
  - CONDITION AGGRAVATED [None]
  - DIZZINESS [None]
  - DRUG EFFECT DECREASED [None]
  - FATIGUE [None]
  - FEELING ABNORMAL [None]
  - HEADACHE [None]
  - HYPOTENSION [None]
  - LIBIDO DECREASED [None]
  - NAUSEA [None]
  - SOMNOLENCE [None]
  - SUICIDAL BEHAVIOUR [None]
  - TREMOR [None]
